FAERS Safety Report 21280026 (Version 1)
Quarter: 2022Q3

REPORT INFORMATION
  Report Type: Spontaneous
  Country: US (occurrence: None)
  Receive Date: 20220831
  Receipt Date: 20220831
  Transmission Date: 20221027
  Serious: Yes (unspecified)
  Sender: FDA-Public Use
  Company Number: None

PATIENT
  Age: 75 Year
  Sex: Male
  Weight: 74.25 kg

DRUGS (22)
  1. THERATEARS EXTRA [Suspect]
     Active Substance: CARBOXYMETHYLCELLULOSE SODIUM
     Indication: Dry eye
     Dosage: FREQUENCY : AS NEEDED;?
     Route: 047
     Dates: start: 20220315, end: 20220730
  2. DEVICE [Concomitant]
     Active Substance: DEVICE
  3. MICARDIS [Concomitant]
     Active Substance: TELMISARTAN
  4. Mitazapine [Concomitant]
  5. morphine sulfate ER [Concomitant]
  6. FLOMAX [Concomitant]
     Active Substance: TAMSULOSIN HYDROCHLORIDE
  7. various nutritional supplements [Concomitant]
  8. HERBALS\TURMERIC [Concomitant]
     Active Substance: HERBALS\TURMERIC
  9. VITAMIN B12 [Concomitant]
     Active Substance: CYANOCOBALAMIN
  10. B1 [Concomitant]
  11. PYRIDOXINE HYDROCHLORIDE [Concomitant]
     Active Substance: PYRIDOXINE HYDROCHLORIDE
  12. C [Concomitant]
  13. VITAMIN D3 [Concomitant]
     Active Substance: CHOLECALCIFEROL
  14. POTASSIUM [Concomitant]
     Active Substance: POTASSIUM
  15. HERBALS [Concomitant]
     Active Substance: HERBALS
  16. DIETARY SUPPLEMENT\HERBALS\INDIAN FRANKINCENSE [Concomitant]
     Active Substance: DIETARY SUPPLEMENT\HERBALS\INDIAN FRANKINCENSE
  17. ZINC [Concomitant]
     Active Substance: ZINC
  18. COPPER [Concomitant]
     Active Substance: COPPER
  19. RUTIN [Concomitant]
     Active Substance: RUTIN
  20. MELATONIN [Concomitant]
     Active Substance: MELATONIN
  21. alpha lipoid acid [Concomitant]
  22. ASTAXANTHIN [Concomitant]
     Active Substance: ASTAXANTHIN

REACTIONS (1)
  - Eye infection bacterial [None]

NARRATIVE: CASE EVENT DATE: 20220715
